FAERS Safety Report 5464397-6 (Version None)
Quarter: 2007Q3

REPORT INFORMATION
  Report Type: 
  Country: None (occurrence: None)
  Receive Date: 20070921
  Receipt Date: 20070914
  Transmission Date: 20080115
  Serious: Yes (Disabling)
  Sender: FDA-Public Use
  Company Number: MA-ASTRAZENECA-2007CG01309

PATIENT
  Age: 66 Year
  Sex: Male
  Weight: 77 kg

DRUGS (3)
  1. ATACAND [Suspect]
     Route: 048
     Dates: start: 20070416, end: 20070101
  2. MIXTARD HM [Concomitant]
     Indication: INSULIN-REQUIRING TYPE II DIABETES MELLITUS
     Dosage: 20 U IN THE MORNING + 14 U IN THE EVENING
     Dates: start: 20070301
  3. CIALIS [Concomitant]
     Indication: ERECTILE DYSFUNCTION

REACTIONS (1)
  - GYNAECOMASTIA [None]
